FAERS Safety Report 5225826-6 (Version None)
Quarter: 2007Q1

REPORT INFORMATION
  Report Type: 
  Country: None (occurrence: None)
  Receive Date: 20070201
  Receipt Date: 20070121
  Transmission Date: 20070707
  Serious: Yes (Other)
  Sender: FDA-Public Use
  Company Number: PHBS2007BR01323

PATIENT
  Sex: Female

DRUGS (1)
  1. METHERGINE [Suspect]
     Indication: HAEMORRHAGE
     Dosage: 0.125 MG, UNK
     Route: 048
     Dates: start: 20070119

REACTIONS (1)
  - HAEMORRHAGE [None]
